FAERS Safety Report 5546713-X (Version None)
Quarter: 2007Q4

REPORT INFORMATION
  Report Type: 
  Country: None (occurrence: None)
  Receive Date: 20071211
  Receipt Date: 20071203
  Transmission Date: 20080405
  Serious: Yes (Other)
  Sender: FDA-Public Use
  Company Number: US-JNJFOC-20071001785

PATIENT
  Sex: Female
  Weight: 80.74 kg

DRUGS (3)
  1. TOPAMAX [Suspect]
     Indication: MIGRAINE PROPHYLAXIS
     Dosage: AT NIGHT
     Route: 048
  2. AMBIEN [Concomitant]
  3. INHALERS [Concomitant]

REACTIONS (5)
  - BRONCHOSPASM [None]
  - CHEST PAIN [None]
  - DYSPNOEA [None]
  - RESPIRATORY TRACT IRRITATION [None]
  - VISION BLURRED [None]
